FAERS Safety Report 6000539-1 (Version None)
Quarter: 2008Q4

REPORT INFORMATION
  Report Type: 
  Country: None (occurrence: None)
  Receive Date: 20081215
  Receipt Date: 20081203
  Transmission Date: 20090506
  Serious: Yes (Death)
  Sender: FDA-Public Use
  Company Number: GB-PFIZER INC-2008100213

PATIENT
  Sex: Female
  Weight: 2.83 kg

DRUGS (9)
  1. SILDENAFIL CITRATE [Suspect]
     Indication: PULMONARY HYPERTENSION
     Dosage: 0.3 MG, EVERY 4 HRS
     Dates: start: 20081121, end: 20081122
  2. NITRIC OXIDE [Concomitant]
  3. ALL OTHER THERAPEUTIC PRODUCTS [Concomitant]
  4. VECURONIUM BROMIDE [Concomitant]
  5. DOPAMINE [Concomitant]
     Dates: start: 20081118
  6. NORADRENALINE [Concomitant]
     Dates: start: 20081118
  7. ADRENALINE [Concomitant]
     Dates: start: 20081118
  8. MORPHINE HYDROCHLORIDE [Concomitant]
     Dates: start: 20081118
  9. HYDROCORTISONE [Concomitant]
     Dates: start: 20081121

REACTIONS (3)
  - DEATH [None]
  - DISEASE PROGRESSION [None]
  - OFF LABEL USE [None]
